FAERS Safety Report 11353819 (Version 1)
Quarter: 2015Q3

REPORT INFORMATION
  Report Type: Spontaneous
  Country: US (occurrence: US)
  Receive Date: 20150807
  Receipt Date: 20150807
  Transmission Date: 20151125
  Serious: No
  Sender: FDA-Public Use
  Company Number: US-JNJFOC-20150322463

PATIENT
  Age: 18 Year
  Sex: Female
  Weight: 52.16 kg

DRUGS (1)
  1. SUDAFED 12 HOUR [Suspect]
     Active Substance: PSEUDOEPHEDRINE HYDROCHLORIDE
     Indication: SINUSITIS
     Dosage: 1 TABLET ONCE
     Route: 048

REACTIONS (3)
  - Nausea [Unknown]
  - Product use issue [Unknown]
  - Abdominal pain upper [Unknown]
